FAERS Safety Report 10691413 (Version 1)
Quarter: 2015Q1

REPORT INFORMATION
  Report Type: Spontaneous
  Country: CN (occurrence: CN)
  Receive Date: 20150105
  Receipt Date: 20150105
  Transmission Date: 20150720
  Serious: Yes (Other)
  Sender: FDA-Public Use
  Company Number: CN-JNJFOC-20150101733

PATIENT

DRUGS (7)
  1. PALIPERIDONE [Suspect]
     Active Substance: PALIPERIDONE
     Indication: SCHIZOPHRENIA
     Route: 048
  2. OLANZAPINE. [Suspect]
     Active Substance: OLANZAPINE
     Indication: SCHIZOPHRENIA
     Route: 065
  3. QUETIAPINE [Suspect]
     Active Substance: QUETIAPINE
     Indication: SCHIZOPHRENIA
     Route: 065
  4. AMISULPRIDE [Suspect]
     Active Substance: AMISULPRIDE
     Indication: SCHIZOPHRENIA
     Route: 065
  5. PALIPERIDONE [Suspect]
     Active Substance: PALIPERIDONE
     Indication: SCHIZOPHRENIA
     Route: 048
  6. ARIPIPRAZOLE. [Suspect]
     Active Substance: ARIPIPRAZOLE
     Indication: SCHIZOPHRENIA
     Route: 065
  7. CLOZAPINE. [Suspect]
     Active Substance: CLOZAPINE
     Indication: SCHIZOPHRENIA
     Route: 065

REACTIONS (31)
  - Tachycardia [Unknown]
  - Hyperglycaemia [Unknown]
  - Weight increased [Unknown]
  - Vomiting [Unknown]
  - Electrocardiogram QT prolonged [Unknown]
  - QRS axis abnormal [Unknown]
  - Eye movement disorder [Unknown]
  - Menstrual disorder [Unknown]
  - Tremor [Unknown]
  - Electrocardiogram PR shortened [Unknown]
  - Agitation [Unknown]
  - Insomnia [Unknown]
  - Breast tenderness [Unknown]
  - Amaurosis [Unknown]
  - Dizziness [Unknown]
  - Asthenia [Unknown]
  - Blood prolactin increased [Unknown]
  - Somnolence [Unknown]
  - Constipation [Unknown]
  - Galactorrhoea [Unknown]
  - Nausea [Unknown]
  - Akathisia [Unknown]
  - Increased appetite [Unknown]
  - Alanine aminotransferase increased [Unknown]
  - White blood cell count increased [Unknown]
  - Myotonia [Unknown]
  - Blood count abnormal [Unknown]
  - Tardive dyskinesia [Unknown]
  - Weight decreased [Unknown]
  - Aspartate aminotransferase increased [Unknown]
  - White blood cell count decreased [Unknown]
